FAERS Safety Report 14425480 (Version 10)
Quarter: 2019Q1

REPORT INFORMATION
  Report Type: Report from Study
  Country: FR (occurrence: FR)
  Receive Date: 20180123
  Receipt Date: 20190320
  Transmission Date: 20190417
  Serious: Yes (Death, Life-Threatening, Hospitalization, Other)
  Sender: FDA-Public Use
  Company Number: PHHY2015FR154945

PATIENT
  Age: 47 Year
  Sex: Female
  Weight: 45 kg

DRUGS (29)
  1. XELODA [Concomitant]
     Active Substance: CAPECITABINE
     Dosage: 800 MG, QD
     Route: 065
     Dates: start: 20140715, end: 20150722
  2. TEMODAL [Concomitant]
     Active Substance: TEMOZOLOMIDE
     Indication: PANCREATIC NEUROENDOCRINE TUMOUR METASTATIC
     Dosage: 200 MG/M2, QD
     Route: 065
     Dates: start: 20140513, end: 20140513
  3. KETOPROFEN. [Concomitant]
     Active Substance: KETOPROFEN
     Indication: PAIN
     Dosage: 100 MG, BID (IN THE MORNING AND IN THE EVENING)
     Route: 065
  4. KETOPROFEN. [Concomitant]
     Active Substance: KETOPROFEN
     Indication: PROPHYLAXIS
     Dosage: UNK
     Route: 065
  5. KETOPROFEN. [Concomitant]
     Active Substance: KETOPROFEN
     Indication: INFLAMMATION
  6. AFINITOR [Suspect]
     Active Substance: EVEROLIMUS
     Indication: PANCREATIC NEUROENDOCRINE TUMOUR METASTATIC
     Dosage: 10 MG, QD
     Route: 065
     Dates: start: 20150804, end: 20151019
  7. SOMATULINE LP [Suspect]
     Active Substance: LANREOTIDE ACETATE
     Indication: PANCREATIC NEUROENDOCRINE TUMOUR METASTATIC
     Dosage: 120 MG, CYCLIC (EVERY 28 DAYS)
     Route: 065
     Dates: start: 20140414
  8. SOMATULINE LP [Suspect]
     Active Substance: LANREOTIDE ACETATE
     Dosage: 120 MG, QMO (MONTHLY)
     Route: 065
     Dates: start: 20140422, end: 20160104
  9. LAROXYL [Concomitant]
     Active Substance: AMITRIPTYLINE HYDROCHLORIDE
     Indication: NEURALGIA
     Dosage: 25 GTT, QD 25  IN EVENING
     Route: 048
     Dates: start: 20150902
  10. OXYNORMORO [Concomitant]
     Active Substance: OXYCODONE HYDROCHLORIDE
     Indication: PAIN
     Dosage: 6 UNK, QD
     Route: 065
  11. SUTENT [Suspect]
     Active Substance: SUNITINIB MALATE
     Indication: PANCREATIC NEUROENDOCRINE TUMOUR METASTATIC
     Dosage: UNK
     Route: 065
     Dates: start: 20151020
  12. TEMODAL [Concomitant]
     Active Substance: TEMOZOLOMIDE
     Dosage: 210 MG, QD
     Route: 065
     Dates: start: 20140715, end: 20150722
  13. OROCAL D3 [Concomitant]
     Active Substance: CALCIUM CARBONATE\CHOLECALCIFEROL
     Indication: CALCIUM DEFICIENCY
     Dosage: 1 DF, BID
     Route: 065
     Dates: start: 20150722
  14. ACTISKENAN [Concomitant]
     Active Substance: MORPHINE SULFATE
     Indication: BACK PAIN
     Dosage: UNK
     Route: 048
  15. PARACETAMOL [Concomitant]
     Active Substance: ACETAMINOPHEN
     Indication: BACK PAIN
  16. OXYCONTIN [Concomitant]
     Active Substance: OXYCODONE HYDROCHLORIDE
     Indication: PAIN
     Dosage: 30 MG, BID (IN THE MORNING AND IN THE EVENING)
     Route: 065
     Dates: start: 20151014
  17. INNOHEP [Concomitant]
     Active Substance: TINZAPARIN SODIUM
     Indication: PORTAL VEIN THROMBOSIS
     Dosage: 0.4 ML, QD
     Route: 058
     Dates: start: 20151014
  18. NEULASTA [Concomitant]
     Active Substance: PEGFILGRASTIM
     Indication: PROPHYLAXIS
     Dosage: UNK
     Route: 065
  19. BI-PROFENID [Concomitant]
     Active Substance: KETOPROFEN
     Indication: BACK PAIN
     Dosage: UNK
     Route: 048
  20. XGEVA [Suspect]
     Active Substance: DENOSUMAB
     Indication: PANCREATIC NEUROENDOCRINE TUMOUR METASTATIC
     Dosage: 120 MG, CYCLIC (EVERY 4 WEEKS)
     Route: 065
     Dates: start: 20140501
  21. XELODA [Concomitant]
     Active Substance: CAPECITABINE
     Indication: PANCREATIC NEUROENDOCRINE TUMOUR METASTATIC
     Dosage: 750 MG/M2, QD
     Route: 065
     Dates: start: 20140513, end: 20140620
  22. INNOHEP [Concomitant]
     Active Substance: TINZAPARIN SODIUM
     Indication: THROMBOSIS
  23. LAROXYL [Concomitant]
     Active Substance: AMITRIPTYLINE HYDROCHLORIDE
     Indication: DEPRESSION
  24. OROCAL D3 [Concomitant]
     Active Substance: CALCIUM CARBONATE\CHOLECALCIFEROL
     Indication: MINERAL SUPPLEMENTATION
  25. PARACETAMOL [Concomitant]
     Active Substance: ACETAMINOPHEN
     Indication: PAIN
     Dosage: UNK
     Route: 048
  26. OXYNORM [Concomitant]
     Active Substance: OXYCODONE HYDROCHLORIDE
     Indication: PAIN
     Dosage: 5 MG UP TO 6 DF, QD IF NEEDED
     Route: 048
     Dates: start: 20151014
  27. MOVICOL [Concomitant]
     Active Substance: POLYETHYLENE GLYCOL 3350\POTASSIUM CHLORIDE\SODIUM BICARBONATE\SODIUM CHLORIDE
     Indication: CONSTIPATION
     Dosage: (2 TO 4 DF ), QD
     Route: 048
  28. SUTENT [Suspect]
     Active Substance: SUNITINIB MALATE
     Dosage: 37.5 MG, QD
     Route: 065
     Dates: start: 20151105
  29. OXYCONTIN [Concomitant]
     Active Substance: OXYCODONE HYDROCHLORIDE
     Indication: PAIN
     Dosage: 60 MG, (30 MG, BID IN THE MORNING AND IN THE EVENING)
     Route: 065
     Dates: start: 20151014

REACTIONS (24)
  - Mucosal inflammation [Recovered/Resolved]
  - Asthenia [Recovered/Resolved]
  - Haematochezia [Unknown]
  - Hypophosphataemia [Unknown]
  - Hypoaesthesia [Unknown]
  - Tachycardia [Recovered/Resolved]
  - Neoplasm progression [Fatal]
  - Weight increased [Unknown]
  - Nausea [Recovered/Resolved]
  - Out of specification test results [Unknown]
  - Weight decreased [Recovered/Resolved]
  - Abdominal distension [Unknown]
  - Abnormal faeces [Unknown]
  - Oedema peripheral [Not Recovered/Not Resolved]
  - Rash [Recovered/Resolved]
  - Abdominal pain [Unknown]
  - Abdominal pain upper [Recovering/Resolving]
  - Vomiting [Recovered/Resolved]
  - Abdominal discomfort [Unknown]
  - Diarrhoea [Recovered/Resolved]
  - Neutropenia [Unknown]
  - Constipation [Recovered/Resolved]
  - Pain [Unknown]
  - Faeces discoloured [Unknown]

NARRATIVE: CASE EVENT DATE: 201508
